FAERS Safety Report 8870660 (Version 1)
Quarter: 2012Q4

REPORT INFORMATION
  Report Type: 
  Country: US (occurrence: US)
  Receive Date: 20121023
  Receipt Date: 20121023
  Transmission Date: 20130627
  Serious: No
  Sender: FDA-Public Use
  Company Number: US-AMGEN-USASP2012023426

PATIENT
  Age: 38 Year
  Sex: Female
  Weight: 101.13 kg

DRUGS (4)
  1. ENBREL [Suspect]
     Indication: RHEUMATOID ARTHRITIS
     Dosage: 50 mg, qwk
     Route: 058
     Dates: start: 20120331
  2. ZANTAC [Concomitant]
     Dosage: 150 mg, UNK
  3. METHOTREXATE [Concomitant]
     Dosage: 2.5 mg, UNK
  4. FOLIC ACID [Concomitant]
     Dosage: 1 mg, UNK

REACTIONS (7)
  - Oedema peripheral [Unknown]
  - Gastroenteritis viral [Unknown]
  - Injection site reaction [Unknown]
  - Injection site pain [Unknown]
  - Injection site warmth [Unknown]
  - Injection site erythema [Unknown]
  - Injection site induration [Unknown]
